FAERS Safety Report 10308974 (Version 1)
Quarter: 2014Q3

REPORT INFORMATION
  Report Type: Spontaneous
  Country: US (occurrence: US)
  Receive Date: 20140716
  Receipt Date: 20140716
  Transmission Date: 20150326
  Serious: Yes (Other)
  Sender: FDA-Public Use
  Company Number: US-BAYER-2014-103962

PATIENT
  Age: 49 Year
  Sex: Male
  Weight: 109 kg

DRUGS (2)
  1. ALEVE [Suspect]
     Active Substance: NAPROXEN SODIUM
     Dosage: BOTTLE COUNT 270S
     Dates: start: 20140708
  2. HUMALOG [INSULIN] [Concomitant]

REACTIONS (4)
  - Nasal discharge discolouration [Recovered/Resolved]
  - Foreign body [Recovered/Resolved]
  - Choking [Recovered/Resolved]
  - Nasal discomfort [Recovered/Resolved]

NARRATIVE: CASE EVENT DATE: 20140708
